FAERS Safety Report 9856672 (Version 1)
Quarter: 2014Q1

REPORT INFORMATION
  Report Type: Spontaneous
  Country: US (occurrence: US)
  Receive Date: 20140130
  Receipt Date: 20140130
  Transmission Date: 20141002
  Serious: Yes (Death, Hospitalization)
  Sender: FDA-Public Use
  Company Number: US-GLAXOSMITHKLINE-A1057673A

PATIENT
  Age: 58 Year
  Sex: Male

DRUGS (7)
  1. VENTOLIN [Suspect]
     Indication: ASTHMA
     Route: 055
  2. CLONAZEPAM [Concomitant]
  3. NORVASC [Concomitant]
  4. SINGULAIR [Concomitant]
  5. CLOBEX [Concomitant]
  6. EFFEXOR XR [Concomitant]
  7. ABILIFY [Concomitant]

REACTIONS (4)
  - Myocardial infarction [Fatal]
  - Abdominal operation [Unknown]
  - Obstruction [Unknown]
  - Post procedural complication [Unknown]
